FAERS Safety Report 10420674 (Version 1)
Quarter: 2014Q3

REPORT INFORMATION
  Report Type: Spontaneous
  Country: US (occurrence: None)
  Receive Date: 20140707
  Receipt Date: 20140707
  Transmission Date: 20150326
  Serious: Yes (Other)
  Sender: FDA-Public Use
  Company Number: 3004421212-2013-00019

PATIENT

DRUGS (1)
  1. TRIDURAL (TRAMADOL HYDROCHLORIDE) [Suspect]
     Active Substance: TRAMADOL HYDROCHLORIDE
     Dosage: NOT REPORTED  UNKNOWN DATES

REACTIONS (1)
  - Hypoglycaemia [None]
